FAERS Safety Report 7691133-5 (Version None)
Quarter: 2011Q3

REPORT INFORMATION
  Report Type: 
  Country: None (occurrence: None)
  Receive Date: 20110815
  Receipt Date: 20110808
  Transmission Date: 20111222
  Serious: Yes (Hospitalization)
  Sender: FDA-Public Use
  Company Number: 2011SP036241

PATIENT
  Age: 40 Year
  Sex: Female

DRUGS (3)
  1. WELLBUTRIN [Concomitant]
  2. OVIDREL [Concomitant]
  3. FOLLISTIM [Suspect]
     Indication: INFERTILITY MALE
     Dosage: QD:SC
     Route: 058
     Dates: start: 20110620, end: 20110627

REACTIONS (1)
  - OVARIAN CYST RUPTURED [None]
